FAERS Safety Report 8483788 (Version 11)
Quarter: 2013Q3

REPORT INFORMATION
  Report Type: Spontaneous
  Country: US (occurrence: US)
  Receive Date: 20120329
  Receipt Date: 20130829
  Transmission Date: 20140515
  Serious: Yes (Hospitalization, Disabling, Other)
  Sender: FDA-Public Use
  Company Number: US-009507513-1111USA02502

PATIENT
  Sex: Female
  Weight: 96.16 kg

DRUGS (6)
  1. FOSAMAX [Suspect]
     Indication: OSTEOPENIA
     Dosage: 70 MG, QW
     Route: 048
     Dates: start: 199901, end: 200808
  2. FOSAMAX [Suspect]
     Dosage: 10 MG, QD
     Route: 048
     Dates: start: 19990301
  3. FOSAMAX [Suspect]
     Dosage: 70 MG, UNK
     Route: 048
     Dates: start: 20080224, end: 20080817
  4. CORTICOSTEROIDS (UNSPECIFIED) [Concomitant]
     Indication: ASTHMA
     Dates: start: 1999, end: 2004
  5. ADVAIR [Concomitant]
     Indication: ASTHMA
     Dosage: UNK UNK, PRN
  6. PROVENTIL [Concomitant]
     Indication: ASTHMA

REACTIONS (77)
  - Femur fracture [Not Recovered/Not Resolved]
  - Femur fracture [Unknown]
  - Road traffic accident [Unknown]
  - Ankle fracture [Unknown]
  - Low turnover osteopathy [Not Recovered/Not Resolved]
  - Deafness [Unknown]
  - Osteonecrosis of jaw [Unknown]
  - Tooth disorder [Unknown]
  - Tooth disorder [Unknown]
  - Fracture [Unknown]
  - Oral surgery [Unknown]
  - Tooth disorder [Unknown]
  - Infection [Unknown]
  - Gingival bleeding [Unknown]
  - Temporomandibular joint syndrome [Unknown]
  - Tooth fracture [Unknown]
  - Tooth disorder [Unknown]
  - Hiatus hernia [Unknown]
  - Ankle deformity [Unknown]
  - Wound [Unknown]
  - Exostosis [Unknown]
  - Generalised anxiety disorder [Unknown]
  - Tendonitis [Unknown]
  - Carpal tunnel syndrome [Unknown]
  - Osteoarthritis [Unknown]
  - Palpitations [Unknown]
  - Cellulitis [Unknown]
  - Cellulitis [Unknown]
  - Arthropod bite [Unknown]
  - Cellulitis [Unknown]
  - Sleep apnoea syndrome [Unknown]
  - Foot fracture [Recovered/Resolved]
  - Pneumonia [Unknown]
  - Road traffic accident [Unknown]
  - Spondylolisthesis [Unknown]
  - Ovarian cyst [Unknown]
  - Tooth disorder [Unknown]
  - Tooth disorder [Unknown]
  - Tooth fracture [Unknown]
  - Tooth disorder [Unknown]
  - Osteoporosis [Unknown]
  - Smear cervix abnormal [Unknown]
  - Cyst [Unknown]
  - Metrorrhagia [Unknown]
  - Menstruation irregular [Unknown]
  - Fall [Unknown]
  - Laceration [Unknown]
  - Aspiration [Unknown]
  - Haemorrhoids [Unknown]
  - Palpitations [Unknown]
  - Chest pain [Unknown]
  - Diplopia [Unknown]
  - Vision blurred [Unknown]
  - Temperature intolerance [Unknown]
  - Dry mouth [Unknown]
  - Tooth fracture [Unknown]
  - Tooth fracture [Unknown]
  - Tooth fracture [Unknown]
  - Dental caries [Unknown]
  - Edentulous [Unknown]
  - Oral pain [Unknown]
  - Abscess [Unknown]
  - Swelling [Unknown]
  - Impaired healing [Unknown]
  - Tooth disorder [Unknown]
  - Abdominal pain [Unknown]
  - Vomiting [Unknown]
  - Gastritis [Unknown]
  - Arthralgia [Unknown]
  - Pain in jaw [Unknown]
  - Pain in extremity [Unknown]
  - Flatulence [Unknown]
  - Bone pain [Unknown]
  - Headache [Unknown]
  - Arthralgia [Unknown]
  - Arthralgia [Recovering/Resolving]
  - Arthralgia [Unknown]
